FAERS Safety Report 16688983 (Version 1)
Quarter: 2019Q3

REPORT INFORMATION
  Report Type: Spontaneous
  Country: NZ (occurrence: NZ)
  Receive Date: 20190809
  Receipt Date: 20190809
  Transmission Date: 20191004
  Serious: Yes (Other)
  Sender: FDA-Public Use
  Company Number: NZ-ELI_LILLY_AND_COMPANY-NZ201907016990

PATIENT
  Sex: Female

DRUGS (14)
  1. HUMALOG [Suspect]
     Active Substance: INSULIN LISPRO
     Dosage: 24 U, EACH MORNING
     Route: 065
     Dates: start: 20190613
  2. HUMALOG [Suspect]
     Active Substance: INSULIN LISPRO
     Indication: TYPE 2 DIABETES MELLITUS
     Dosage: 24 U, EACH MORNING
     Route: 065
  3. SIMVASTATIN. [Concomitant]
     Active Substance: SIMVASTATIN
     Indication: PRODUCT USED FOR UNKNOWN INDICATION
  4. HUMALOG [Suspect]
     Active Substance: INSULIN LISPRO
     Dosage: 20 U, EACH MORNING
     Route: 065
     Dates: start: 20190613
  5. METFORMIN [Concomitant]
     Active Substance: METFORMIN HYDROCHLORIDE
     Indication: PRODUCT USED FOR UNKNOWN INDICATION
  6. HUMALOG [Suspect]
     Active Substance: INSULIN LISPRO
     Dosage: 20 U, EACH MORNING
     Route: 065
  7. CILAZAPRIL;HYDROCHLOROTHIAZIDE [Concomitant]
     Active Substance: CILAZAPRIL ANHYDROUS\HYDROCHLOROTHIAZIDE
     Indication: PRODUCT USED FOR UNKNOWN INDICATION
  8. OMEPRAZOLE. [Concomitant]
     Active Substance: OMEPRAZOLE
     Indication: PRODUCT USED FOR UNKNOWN INDICATION
  9. NORTRIPTYLINE [Concomitant]
     Active Substance: NORTRIPTYLINE
     Indication: PRODUCT USED FOR UNKNOWN INDICATION
  10. HUMULIN N [Suspect]
     Active Substance: INSULIN HUMAN
     Dosage: 24 U, EACH MORNING
     Route: 065
  11. HUMULIN N [Suspect]
     Active Substance: INSULIN HUMAN
     Dosage: 30 U, EACH MORNING
     Route: 065
     Dates: start: 20190613
  12. HUMULIN N [Suspect]
     Active Substance: INSULIN HUMAN
     Indication: TYPE 2 DIABETES MELLITUS
     Dosage: 30 U, EACH MORNING
     Route: 065
  13. HUMULIN N [Suspect]
     Active Substance: INSULIN HUMAN
     Dosage: 24 U, EACH MORNING
     Route: 065
     Dates: start: 20190613
  14. ASPIRIN ACETYLSALICYLIC ACID [Concomitant]
     Active Substance: ASPIRIN
     Indication: PRODUCT USED FOR UNKNOWN INDICATION

REACTIONS (4)
  - Pain [Unknown]
  - Product storage error [Unknown]
  - Blood cholesterol abnormal [Unknown]
  - Blood pressure abnormal [Unknown]
